FAERS Safety Report 7821524-0 (Version None)
Quarter: 2011Q4

REPORT INFORMATION
  Report Type: 
  Country: None (occurrence: None)
  Receive Date: 20111018
  Receipt Date: 20111013
  Transmission Date: 20120403
  Serious: Yes (Other)
  Sender: FDA-Public Use
  Company Number: BR-PFIZER INC-2011245100

PATIENT
  Age: 58 Year
  Sex: Female
  Weight: 57.5 kg

DRUGS (3)
  1. LOSARTAN [Concomitant]
     Indication: HYPERTENSION
     Dosage: 100 MG, DAILY
     Dates: start: 20030101
  2. REPAGLINIDE [Concomitant]
     Dosage: 2 MG, 3X/DAY (BEFORE MEALS)
  3. ATORVASTATIN CALCIUM [Suspect]
     Indication: DYSLIPIDAEMIA
     Dosage: 20 MG, UNK

REACTIONS (4)
  - WEIGHT DECREASED [None]
  - WEIGHT INCREASED [None]
  - INSULIN RESISTANCE [None]
  - INSULIN C-PEPTIDE INCREASED [None]
